FAERS Safety Report 17516835 (Version 5)
Quarter: 2020Q2

REPORT INFORMATION
  Report Type: Spontaneous
  Country: AR (occurrence: AR)
  Receive Date: 20200309
  Receipt Date: 20200623
  Transmission Date: 20200713
  Serious: Yes (Death, Hospitalization, Other)
  Sender: FDA-Public Use
  Company Number: AR-TAKEDA-2020TUS012295

PATIENT
  Age: 53 Year
  Sex: Male

DRUGS (4)
  1. FOLIC ACID. [Concomitant]
     Active Substance: FOLIC ACID
     Dosage: UNK
     Route: 065
  2. PONATINIB [Suspect]
     Active Substance: PONATINIB
     Dosage: 30 MILLIGRAM
     Route: 048
     Dates: start: 20200422, end: 20200429
  3. ERYTHROPOIETIN [Concomitant]
     Active Substance: ERYTHROPOIETIN
     Dosage: 400 INTERNATIONAL UNIT
     Route: 065
  4. PONATINIB [Suspect]
     Active Substance: PONATINIB
     Indication: CHRONIC MYELOID LEUKAEMIA
     Dosage: 15 MILLIGRAM
     Route: 048
     Dates: start: 20190816, end: 202002

REACTIONS (9)
  - Chronic myeloid leukaemia [Unknown]
  - Pyrexia [Fatal]
  - Thrombocytopenia [Unknown]
  - Blast crisis in myelogenous leukaemia [Unknown]
  - Anaemia [Unknown]
  - COVID-19 [Fatal]
  - Bone marrow failure [Fatal]
  - Atrial fibrillation [Fatal]
  - Respiratory failure [Fatal]

NARRATIVE: CASE EVENT DATE: 20200203
